FAERS Safety Report 8341640-7 (Version None)
Quarter: 2012Q2

REPORT INFORMATION
  Report Type: 
  Country: None (occurrence: None)
  Receive Date: 20120507
  Receipt Date: 20120430
  Transmission Date: 20120825
  Serious: Yes (Hospitalization)
  Sender: FDA-Public Use
  Company Number: US-ALEXION-A201200856

PATIENT
  Sex: Male

DRUGS (10)
  1. ATIVAN [Concomitant]
     Dosage: UNK. Q 4 HOURS PRN
     Route: 048
  2. FOLIC ACID [Concomitant]
     Dosage: 1 MG, QD
     Route: 048
  3. COMPAZINE [Concomitant]
     Dosage: 10 MG, Q 6 HOURS, PRN
     Route: 048
  4. SOLIRIS [Suspect]
     Indication: PAROXYSMAL NOCTURNAL HAEMOGLOBINURIA
     Dosage: 900 MG, UNK
     Route: 042
  5. AMBIEN [Concomitant]
     Dosage: 10 MG Q HS
     Route: 048
  6. VITAMIN B-12 [Concomitant]
     Dosage: 250 MG, QD
     Route: 048
  7. ZOFRAN [Concomitant]
     Indication: NAUSEA
     Dosage: 8 MG, Q 8 HOURS, PRN
     Route: 048
  8. COLACE [Concomitant]
     Dosage: 100 MG, HS
     Route: 048
  9. OXYCODONE HCL [Concomitant]
     Indication: PAIN
     Dosage: 5-10 MG, Q 4 HOURS
     Route: 048
  10. SENNA-MINT WAF [Concomitant]
     Dosage: 2 TABS, Q HS, PRN
     Route: 048

REACTIONS (2)
  - STAPHYLOCOCCAL INFECTION [None]
  - NEUTROPENIA [None]
